FAERS Safety Report 10217523 (Version 2)
Quarter: 2015Q2

REPORT INFORMATION
  Report Type: Spontaneous
  Country: ES (occurrence: ES)
  Receive Date: 20140604
  Receipt Date: 20150626
  Transmission Date: 20150821
  Serious: Yes (Other)
  Sender: FDA-Public Use
  Company Number: ES-UCBSA-122680

PATIENT
  Age: 47 Year
  Sex: Male

DRUGS (5)
  1. RIVOTRIL [Interacting]
     Active Substance: CLONAZEPAM
     Indication: RESTLESS LEGS SYNDROME
     Dosage: 0.5 MG
     Route: 048
     Dates: start: 201308
  2. ALPRAZOLAM. [Concomitant]
     Active Substance: ALPRAZOLAM
     Dosage: 0.5
  3. NEUPRO [Suspect]
     Active Substance: ROTIGOTINE
     Dosage: 2 MG, ONCE DAILY (QD)
     Route: 062
     Dates: start: 201307
  4. CODEINE [Interacting]
     Active Substance: CODEINE
     Indication: RESTLESS LEGS SYNDROME
     Dosage: 28.7 MG, ONCE DAILY (QD)
     Route: 048
     Dates: start: 201308
  5. NEUPRO [Interacting]
     Active Substance: ROTIGOTINE
     Dosage: INCREASED DOSE
     Route: 062
     Dates: end: 20140428

REACTIONS (7)
  - Dyspnoea exertional [Unknown]
  - Anxiety [Unknown]
  - Depressed mood [Unknown]
  - Decreased appetite [Unknown]
  - Drug interaction [Recovered/Resolved]
  - Asthenia [Unknown]
  - Libido decreased [Unknown]

NARRATIVE: CASE EVENT DATE: 201308
